FAERS Safety Report 5788428-9 (Version None)
Quarter: 2008Q2

REPORT INFORMATION
  Report Type: 
  Country: None (occurrence: None)
  Receive Date: 20080623
  Receipt Date: 20080610
  Transmission Date: 20081010
  Serious: Yes (Death)
  Sender: FDA-Public Use
  Company Number: 029382

PATIENT
  Age: 27 Year

DRUGS (3)
  1. METFORMIN HYDROCHLORIDE [Suspect]
     Dosage: ORAL
     Route: 048
  2. GLYBURIDE [Suspect]
     Dosage: ORAL
     Route: 048
  3. ETHANOL(ETHANOL) [Suspect]
     Dosage: ORAL
     Route: 048

REACTIONS (2)
  - COMPLETED SUICIDE [None]
  - DRUG TOXICITY [None]
